FAERS Safety Report 25528262 (Version 1)
Quarter: 2025Q3

REPORT INFORMATION
  Report Type: Spontaneous
  Country: EU (occurrence: EU)
  Receive Date: 20250708
  Receipt Date: 20250708
  Transmission Date: 20251020
  Serious: Yes (Life-Threatening)
  Sender: ROCHE
  Company Number: None

PATIENT
  Age: 36 Year
  Sex: Female
  Weight: 75 kg

DRUGS (1)
  1. OCREVUS [Suspect]
     Active Substance: OCRELIZUMAB
     Indication: Relapsing-remitting multiple sclerosis
     Route: 042
     Dates: start: 20250123, end: 20250206

REACTIONS (2)
  - Myocardial infarction [Recovered/Resolved with Sequelae]
  - Cardio-respiratory arrest [Recovered/Resolved with Sequelae]

NARRATIVE: CASE EVENT DATE: 20250523
